FAERS Safety Report 14980122 (Version 1)
Quarter: 2018Q2

REPORT INFORMATION
  Report Type: Spontaneous
  Country: US (occurrence: US)
  Receive Date: 20180515
  Receipt Date: 20180515
  Transmission Date: 20180711
  Serious: Yes (Death)
  Sender: FDA-Public Use
  Company Number: None

PATIENT
  Age: 95 Year
  Sex: Female

DRUGS (6)
  1. TOLTERODINE [Concomitant]
     Active Substance: TOLTERODINE
  2. LEVOTHYROXINE. [Concomitant]
     Active Substance: LEVOTHYROXINE
  3. ELIQUIS [Concomitant]
     Active Substance: APIXABAN
  4. CHLORTHALIDONE. [Concomitant]
     Active Substance: CHLORTHALIDONE
  5. PROMACTA [Suspect]
     Active Substance: ELTROMBOPAG OLAMINE
     Indication: THROMBOCYTOPENIA
     Route: 048
     Dates: start: 20130309, end: 20180423
  6. LOSARTAN. [Concomitant]
     Active Substance: LOSARTAN

REACTIONS (1)
  - Death [None]
